FAERS Safety Report 14483160 (Version 4)
Quarter: 2018Q3

REPORT INFORMATION
  Report Type: Spontaneous
  Country: US (occurrence: US)
  Receive Date: 20180204
  Receipt Date: 20180719
  Transmission Date: 20181010
  Serious: Yes (Hospitalization, Other)
  Sender: FDA-Public Use
  Company Number: US-JNJFOC-20180130082

PATIENT
  Sex: Male

DRUGS (6)
  1. CEFEPIME [Suspect]
     Active Substance: CEFEPIME HYDROCHLORIDE
     Indication: PYREXIA
     Route: 065
     Dates: start: 201801, end: 201801
  2. ZYVOX [Suspect]
     Active Substance: LINEZOLID
     Indication: PYREXIA
     Route: 065
     Dates: start: 201801, end: 201801
  3. IMBRUVICA [Suspect]
     Active Substance: IBRUTINIB
     Indication: CHRONIC LYMPHOCYTIC LEUKAEMIA
     Route: 048
  4. ZYVOX [Suspect]
     Active Substance: LINEZOLID
     Indication: CHILLS
     Route: 065
     Dates: start: 201801, end: 201801
  5. VENETOCLAX. [Suspect]
     Active Substance: VENETOCLAX
     Indication: CHRONIC LYMPHOCYTIC LEUKAEMIA
     Route: 065
  6. CEFEPIME [Suspect]
     Active Substance: CEFEPIME HYDROCHLORIDE
     Indication: CHILLS
     Route: 065
     Dates: start: 201801, end: 201801

REACTIONS (5)
  - Pneumonia [Unknown]
  - Renal impairment [Recovering/Resolving]
  - Conjunctivitis [Unknown]
  - Chills [Unknown]
  - Cough [Unknown]

NARRATIVE: CASE EVENT DATE: 20180113
